FAERS Safety Report 4864024-2 (Version None)
Quarter: 2005Q4

REPORT INFORMATION
  Report Type: 
  Country: None (occurrence: None)
  Receive Date: 20051219
  Receipt Date: 20051219
  Transmission Date: 20060501
  Serious: Yes (Hospitalization)
  Sender: FDA-Public Use
  Company Number: None

PATIENT
  Age: 57 Year
  Sex: Male
  Weight: 111 kg

DRUGS (15)
  1. SIMVASTATIN [Suspect]
     Dosage: 40  MG HS
  2. GEMFIBROZIL [Suspect]
     Dosage: 600 MG AM
  3. APAP#3 [Concomitant]
  4. ASPIRIN [Concomitant]
  5. BACLOFEN [Concomitant]
  6. CARDEDILOL [Concomitant]
  7. CLOPIDOGREL [Concomitant]
  8. FUROSEMIDE [Concomitant]
  9. GABAPENTIN [Concomitant]
  10. LISINOPRIL [Concomitant]
  11. METFORMIN [Concomitant]
  12. MORPHINE [Concomitant]
  13. SILDENAFIL [Concomitant]
  14. SPIRONOLACTONE [Concomitant]
  15. VENLAFAXINE HCL [Concomitant]

REACTIONS (5)
  - FALL [None]
  - GASTROINTESTINAL HAEMORRHAGE [None]
  - MENTAL STATUS CHANGES [None]
  - RHABDOMYOLYSIS [None]
  - SOMNOLENCE [None]
